FAERS Safety Report 4686806-2 (Version None)
Quarter: 2005Q2

REPORT INFORMATION
  Report Type: 
  Country: None (occurrence: None)
  Receive Date: 20050608
  Receipt Date: 20050519
  Transmission Date: 20051028
  Serious: Yes (Hospitalization)
  Sender: FDA-Public Use
  Company Number: US136170

PATIENT
  Age: 73 Year
  Sex: Female

DRUGS (4)
  1. ENBREL [Suspect]
     Indication: RHEUMATOID ARTHRITIS
     Dosage: 25 MG, 2 IN 1 WEEKS, SC
     Route: 058
     Dates: start: 20020101, end: 20030101
  2. METHYLPRENDNSOLONE (METHYLPREDNISOLONE) [Concomitant]
  3. DICLOFENAC (DICLOFENAC) [Concomitant]
  4. RISEDRONATE (RISEDRONATE) [Concomitant]

REACTIONS (15)
  - ABSCESS [None]
  - ALPHA 1 GLOBULIN INCREASED [None]
  - ANAEMIA [None]
  - ARTHRALGIA [None]
  - ASTHENIA [None]
  - CELLULITIS [None]
  - ERYTHEMA [None]
  - FEEDING DISORDER [None]
  - GENERAL PHYSICAL HEALTH DETERIORATION [None]
  - HYPERPYREXIA [None]
  - LYMPHADENOPATHY [None]
  - LYMPHOCYTE COUNT DECREASED [None]
  - MASTICATION DISORDER [None]
  - NEUTROPHIL PERCENTAGE INCREASED [None]
  - TOOTHACHE [None]
